FAERS Safety Report 4463409-6 (Version None)
Quarter: 2004Q3

REPORT INFORMATION
  Report Type: 
  Country: None (occurrence: None)
  Receive Date: 20040928
  Receipt Date: 20040914
  Transmission Date: 20050211
  Serious: Yes (Disabling)
  Sender: FDA-Public Use
  Company Number: 04P-163-0273314-0

PATIENT
  Age: 62 Year
  Sex: Female

DRUGS (12)
  1. HUMIRA [Suspect]
     Indication: RHEUMATOID ARTHRITIS
     Dosage: 40 MG, 1 IN 2 WK, SUBCUTANEOUS
     Route: 058
     Dates: start: 20040801, end: 20040901
  2. FLUOXETINE HYDROCHLORIDE [Concomitant]
  3. METHOTREXATE SODIUM [Concomitant]
  4. PREDNISONE [Concomitant]
  5. BUCINDOLOL HYDROCHLORIDE [Concomitant]
  6. ESOMEPRAZOLE [Concomitant]
  7. PRIMIDONE [Concomitant]
  8. TRIAMTERENE [Concomitant]
  9. ATORVASTATIN CALCIUM [Concomitant]
  10. FOLIC ACID [Concomitant]
  11. RISEDRONATE SODIUM [Concomitant]
  12. HYDROCODONE [Concomitant]

REACTIONS (6)
  - ABDOMINAL PAIN [None]
  - FALL [None]
  - INJECTION SITE PAIN [None]
  - INTERVERTEBRAL DISC DEGENERATION [None]
  - NERVE ROOT COMPRESSION [None]
  - WEIGHT INCREASED [None]
